FAERS Safety Report 23427619 (Version 2)
Quarter: 2024Q1

REPORT INFORMATION
  Report Type: Spontaneous
  Country: JP (occurrence: JP)
  Receive Date: 20240122
  Receipt Date: 20240130
  Transmission Date: 20240410
  Serious: Yes (Other)
  Sender: FDA-Public Use
  Company Number: JP-BEH-2023165181

PATIENT
  Age: 80 Year
  Sex: Male
  Weight: 45 kg

DRUGS (5)
  1. ALBUMINAR-25 [Suspect]
     Active Substance: ALBUMIN HUMAN
     Indication: Pleural effusion
     Dosage: 50 MILLILITER
     Route: 041
     Dates: start: 20231030, end: 20231030
  2. ALBUMINAR-25 [Suspect]
     Active Substance: ALBUMIN HUMAN
     Indication: Ascites
  3. OXYGEN [Concomitant]
     Active Substance: OXYGEN
     Dosage: 3 LITER
  4. OXYGEN [Concomitant]
     Active Substance: OXYGEN
     Dosage: 7 LITER
     Dates: start: 20231030, end: 20231030
  5. OXYGEN [Concomitant]
     Active Substance: OXYGEN
     Dosage: 3 LITER
     Dates: start: 20231030

REACTIONS (1)
  - Dyspnoea [Recovered/Resolved]

NARRATIVE: CASE EVENT DATE: 20231030
